FAERS Safety Report 7544151-1 (Version None)
Quarter: 2011Q2

REPORT INFORMATION
  Report Type: 
  Country: None (occurrence: None)
  Receive Date: 20110613
  Receipt Date: 20060302
  Transmission Date: 20111010
  Serious: Yes (Other)
  Sender: FDA-Public Use
  Company Number: PHFR2006GB00796

PATIENT
  Sex: Male
  Weight: 70 kg

DRUGS (6)
  1. NOVORAPID [Concomitant]
     Dosage: 8 UNK, UNK
  2. NOVORAPID [Concomitant]
     Dosage: 12 UNK, UNK
  3. METFORMIN HCL [Concomitant]
     Indication: DIABETES MELLITUS
     Dosage: 500 MG, QD
     Route: 048
  4. LANTUS [Concomitant]
     Indication: DIABETES MELLITUS
     Dosage: 30 U, QD
     Route: 058
  5. NOVORAPID [Concomitant]
     Indication: DIABETES MELLITUS
     Dosage: 4 UNK, UNK
     Route: 058
  6. CLOZAPINE [Suspect]
     Indication: SCHIZOPHRENIA
     Dosage: UNK, UNK
     Route: 048
     Dates: start: 20060111

REACTIONS (8)
  - HAEMOGLOBIN DECREASED [None]
  - WEIGHT DECREASED [None]
  - DIABETES MELLITUS INADEQUATE CONTROL [None]
  - HAEMATURIA [None]
  - LOWER RESPIRATORY TRACT INFECTION [None]
  - PLATELET COUNT INCREASED [None]
  - INCREASED APPETITE [None]
  - ANAEMIA [None]
